FAERS Safety Report 14970618 (Version 5)
Quarter: 2018Q4

REPORT INFORMATION
  Report Type: Report from Study
  Country: US (occurrence: US)
  Receive Date: 20180604
  Receipt Date: 20181023
  Transmission Date: 20190204
  Serious: Yes (Hospitalization)
  Sender: FDA-Public Use
  Company Number: US-JNJFOC-20180536830

PATIENT
  Age: 81 Year
  Sex: Female

DRUGS (2)
  1. IMBRUVICA [Suspect]
     Active Substance: IBRUTINIB
     Indication: CHRONIC LYMPHOCYTIC LEUKAEMIA
     Dosage: 280 MG, QD
     Route: 048
     Dates: start: 20180816
  2. IMBRUVICA [Suspect]
     Active Substance: IBRUTINIB
     Indication: CHRONIC LYMPHOCYTIC LEUKAEMIA
     Dosage: 420 MG, QD
     Route: 048
     Dates: start: 20180515, end: 201805

REACTIONS (10)
  - Fall [Unknown]
  - Peripheral swelling [Unknown]
  - Hypersensitivity [Not Recovered/Not Resolved]
  - Stomatitis [Unknown]
  - Syncope [Unknown]
  - Incorrect dose administered [Unknown]
  - Nausea [Unknown]
  - Arrhythmia [Not Recovered/Not Resolved]
  - Haematoma [Unknown]
  - Off label use [Unknown]

NARRATIVE: CASE EVENT DATE: 201805
